FAERS Safety Report 26107205 (Version 1)
Quarter: 2025Q4

REPORT INFORMATION
  Report Type: Spontaneous
  Country: EU (occurrence: EU)
  Receive Date: 20251201
  Receipt Date: 20251201
  Transmission Date: 20260117
  Serious: Yes (Hospitalization)
  Sender: TEVA
  Company Number: None

PATIENT
  Age: 38 Year
  Sex: Female

DRUGS (2)
  1. METFORMIN [Suspect]
     Active Substance: METFORMIN HYDROCHLORIDE
     Indication: Type 2 diabetes mellitus
     Dosage: METFORMIN 500 MG THREE TIMES DAILY. THE TREATMENT START DATE WAS OFFICIALLY ASSIGNED.
     Route: 048
     Dates: start: 20250101, end: 20251103
  2. RYBELSUS [Suspect]
     Active Substance: SEMAGLUTIDE
     Indication: Type 2 diabetes mellitus
     Dosage: RYBELSUS 1 TABLET PER DAY. THE START DATE OF THERAPY IS OFFICIALLY ASSIGNED.
     Route: 048
     Dates: start: 20250101, end: 20251103

REACTIONS (2)
  - Hyperglycaemia [Recovering/Resolving]
  - Drug ineffective [Recovered/Resolved]

NARRATIVE: CASE EVENT DATE: 20251103
